FAERS Safety Report 15982901 (Version 1)
Quarter: 2019Q1

REPORT INFORMATION
  Report Type: Spontaneous
  Country: FR (occurrence: FR)
  Receive Date: 20190219
  Receipt Date: 20190219
  Transmission Date: 20190418
  Serious: Yes (Hospitalization)
  Sender: FDA-Public Use
  Company Number: FR-PFIZER INC-2019064042

PATIENT
  Age: 25 Year
  Sex: Male

DRUGS (11)
  1. DIAZEPAM. [Suspect]
     Active Substance: DIAZEPAM
     Dosage: 8 DF, 1X/DAY
     Route: 065
     Dates: start: 2017
  2. TOBACCO [Suspect]
     Active Substance: TOBACCO LEAF
     Indication: TOBACCO USER
     Dosage: 15 CIGS/DAY
     Route: 055
     Dates: start: 2011
  3. AMPHETAMINE [Suspect]
     Active Substance: AMPHETAMINE
     Dosage: UNK
     Route: 065
     Dates: start: 2015, end: 2018
  4. ALPRAZOLAM. [Suspect]
     Active Substance: ALPRAZOLAM
     Dosage: NOT SPECIFIED
     Route: 065
     Dates: start: 2015
  5. BUPRENORPHINE. [Suspect]
     Active Substance: BUPRENORPHINE
     Dosage: UNK
     Route: 045
     Dates: end: 201812
  6. CODEINE [Suspect]
     Active Substance: CODEINE
     Dosage: UNK
     Route: 065
     Dates: start: 2014, end: 2015
  7. ALCOOL [Suspect]
     Active Substance: ALCOHOL
     Indication: ALCOHOL ABUSE
     Dosage: 22-30 IU, DAILY
     Route: 048
     Dates: start: 2011
  8. OXAZEPAM. [Suspect]
     Active Substance: OXAZEPAM
     Dosage: 1000 MG, 1X/DAY
     Route: 065
  9. METHADONE AP HP [Suspect]
     Active Substance: METHADONE HYDROCHLORIDE
     Dosage: 20 MG, 1X/DAY
     Route: 065
  10. COCAINE [Suspect]
     Active Substance: COCAINE
     Dosage: UNK
     Route: 065
  11. CANNABIS [Suspect]
     Active Substance: CANNABIS SATIVA SUBSP. INDICA TOP
     Dosage: 10 JOINTS/DAILY
     Route: 055
     Dates: start: 2011, end: 2016

REACTIONS (4)
  - Withdrawal syndrome [Recovered/Resolved]
  - Substance abuse [Recovering/Resolving]
  - Drug dependence [Recovering/Resolving]
  - Intentional product misuse [Recovered/Resolved]

NARRATIVE: CASE EVENT DATE: 2011
